FAERS Safety Report 9150115 (Version 1)
Quarter: 2013Q1

REPORT INFORMATION
  Report Type: Spontaneous
  Country: CA (occurrence: CA)
  Receive Date: 20130308
  Receipt Date: 20130308
  Transmission Date: 20140127
  Serious: Yes (Death, Other)
  Sender: FDA-Public Use
  Company Number: PHHY2013CA022495

PATIENT
  Age: 51 Year
  Sex: Female

DRUGS (1)
  1. IMATINIB [Suspect]
     Indication: CHOROID MELANOMA
     Dosage: UNK UKN, UNK

REACTIONS (3)
  - Death [Fatal]
  - Metastasis [Unknown]
  - Therapeutic response decreased [Unknown]
